FAERS Safety Report 7027742-6 (Version None)
Quarter: 2010Q4

REPORT INFORMATION
  Report Type: 
  Country: None (occurrence: None)
  Receive Date: 20101004
  Receipt Date: 20100930
  Transmission Date: 20110411
  Serious: Yes (Other)
  Sender: FDA-Public Use
  Company Number: PT-BRISTOL-MYERS SQUIBB COMPANY-15315120

PATIENT
  Age: 32 Year
  Sex: Female

DRUGS (4)
  1. ATAZANAVIR [Suspect]
     Indication: HIV INFECTION
     Dosage: ONGOING
  2. RITONAVIR [Suspect]
     Indication: HIV INFECTION
     Dosage: ONGOING
  3. TRUVADA [Suspect]
     Indication: HIV INFECTION
     Dosage: ONGOING
  4. IRON + FOLIC ACID [Suspect]
     Indication: PREGNANCY

REACTIONS (3)
  - CAESAREAN SECTION [None]
  - LIVE BIRTH [None]
  - PREGNANCY [None]
